FAERS Safety Report 12908526 (Version 4)
Quarter: 2016Q4

REPORT INFORMATION
  Report Type: Spontaneous
  Country: US (occurrence: US)
  Receive Date: 20161103
  Receipt Date: 20161220
  Transmission Date: 20170207
  Serious: No
  Sender: FDA-Public Use
  Company Number: US-ACTELION-A-US2016-145068

PATIENT
  Age: 59 Year
  Sex: Female
  Weight: 108.84 kg

DRUGS (3)
  1. COUMADIN [Concomitant]
     Active Substance: WARFARIN SODIUM
  2. UPTRAVI [Suspect]
     Active Substance: SELEXIPAG
     Indication: PULMONARY ARTERIAL HYPERTENSION
     Dosage: 200 MCG, BID
     Route: 048
     Dates: start: 20161006
  3. UPTRAVI [Suspect]
     Active Substance: SELEXIPAG
     Dosage: 400 MCG, UNK
     Route: 048
     Dates: start: 20161030, end: 20161114

REACTIONS (10)
  - Throat irritation [Unknown]
  - Productive cough [Unknown]
  - Rash [Unknown]
  - Sinusitis [Unknown]
  - Nasopharyngitis [Unknown]
  - Vomiting [Unknown]
  - Cough [Unknown]
  - Bronchitis [Unknown]
  - Malaise [Unknown]
  - Diarrhoea [Unknown]
